FAERS Safety Report 8759900 (Version 2)
Quarter: 2012Q4

REPORT INFORMATION
  Report Type: 
  Country: US (occurrence: US)
  Receive Date: 20120829
  Receipt Date: 20121114
  Transmission Date: 20130627
  Serious: Yes (Other)
  Sender: FDA-Public Use
  Company Number: US-FRI-1000038148

PATIENT
  Sex: Female

DRUGS (1)
  1. CELEXA [Suspect]
     Indication: DEPRESSION
     Dosage: 40 MG
     Route: 064
     Dates: start: 200607, end: 200612

REACTIONS (4)
  - Visual impairment [Not Recovered/Not Resolved]
  - Ear infection [Not Recovered/Not Resolved]
  - Tooth hypoplasia [Not Recovered/Not Resolved]
  - Overweight [Not Recovered/Not Resolved]
